FAERS Safety Report 8214039-1 (Version None)
Quarter: 2012Q1

REPORT INFORMATION
  Report Type: 
  Country: None (occurrence: None)
  Receive Date: 20120314
  Receipt Date: 20120314
  Transmission Date: 20120608
  Serious: No
  Sender: FDA-Public Use
  Company Number: None

PATIENT
  Sex: Male

DRUGS (6)
  1. CYANOCOBALAMIN [Concomitant]
  2. REVLIMID [Suspect]
     Indication: MULTIPLE MYELOMA
     Dosage: REVLIMID 15MG DAILY FOR 21/DAYS ORAL
     Route: 048
     Dates: start: 20090401, end: 20120304
  3. ATENOLOL [Concomitant]
  4. LORAZEPAM [Concomitant]
  5. PAMIDRONATE DISODIUM [Concomitant]
  6. ZOLPIDEM [Concomitant]

REACTIONS (2)
  - NEUROPATHY PERIPHERAL [None]
  - DIARRHOEA [None]
